FAERS Safety Report 5134463-3 (Version None)
Quarter: 2006Q4

REPORT INFORMATION
  Report Type: 
  Country: None (occurrence: None)
  Receive Date: 20061025
  Receipt Date: 20060823
  Transmission Date: 20070319
  Serious: Yes (Hospitalization)
  Sender: FDA-Public Use
  Company Number: ZA-AVENTIS-200618837GDDC

PATIENT
  Age: 66 Year
  Sex: Male
  Weight: 59 kg

DRUGS (12)
  1. KETEK [Suspect]
     Indication: BRONCHITIS
     Route: 048
     Dates: start: 20060719, end: 20060721
  2. CRESTOR [Suspect]
     Indication: HYPERCHOLESTEROLAEMIA
     Route: 048
     Dates: start: 20060119, end: 20060721
  3. ATACAND HCT [Concomitant]
     Indication: HYPERTENSION
     Dosage: DOSE: UNK
     Route: 048
  4. ROCEPHIN                           /00672201/ [Concomitant]
     Route: 042
     Dates: start: 20060722
  5. THIAMINE [Concomitant]
     Route: 042
     Dates: start: 20060722
  6. NEUROBION                          /00091901/ [Concomitant]
     Route: 048
     Dates: start: 20060722
  7. VALIUM [Concomitant]
     Route: 042
     Dates: start: 20060722
  8. NEXIUM [Concomitant]
     Route: 042
     Dates: start: 20060725
  9. HYDROCORTISONE ACETATE [Concomitant]
     Route: 042
     Dates: start: 20060725
  10. ASPIRIN [Concomitant]
     Dates: start: 20060725
  11. CLEXANE [Concomitant]
     Route: 058
     Dates: start: 20060725
  12. TEN-BLOKA [Concomitant]
     Dosage: DOSE: UNK

REACTIONS (7)
  - BLOOD CREATININE INCREASED [None]
  - BLOOD UREA INCREASED [None]
  - BRONCHITIS [None]
  - COUGH [None]
  - MUSCULAR WEAKNESS [None]
  - MYALGIA [None]
  - RENAL FAILURE ACUTE [None]
